FAERS Safety Report 20432514 (Version 1)
Quarter: 2022Q1

REPORT INFORMATION
  Report Type: Spontaneous
  Country: US (occurrence: US)
  Receive Date: 20220204
  Receipt Date: 20220204
  Transmission Date: 20220423
  Serious: No
  Sender: FDA-Public Use
  Company Number: US-PERRIGO-21US011959

PATIENT
  Age: 56 Year
  Sex: Female
  Weight: 52.154 kg

DRUGS (2)
  1. TRETINOIN [Suspect]
     Active Substance: TRETINOIN
     Indication: Acne
     Dosage: 1 TO 2 PEA SIZED APPLICATIONS, QOD
     Route: 061
     Dates: end: 202105
  2. TRETINOIN [Suspect]
     Active Substance: TRETINOIN
     Dosage: 1 TO 2 PEA SIZED APPLICATIONS, QD
     Route: 061
     Dates: start: 202105, end: 202108

REACTIONS (2)
  - Therapeutic product effect decreased [Unknown]
  - Inappropriate schedule of product administration [Recovered/Resolved]

NARRATIVE: CASE EVENT DATE: 20210501
